FAERS Safety Report 9328985 (Version 2)
Quarter: 2013Q2

REPORT INFORMATION
  Report Type: Spontaneous
  Country: JP (occurrence: JP)
  Receive Date: 20130604
  Receipt Date: 20130611
  Transmission Date: 20140414
  Serious: Yes (Death)
  Sender: FDA-Public Use
  Company Number: JP-TEVA-408446ISR

PATIENT
  Age: 56 Year
  Sex: Male

DRUGS (2)
  1. CISPLATIN [Suspect]
     Indication: NON-SMALL CELL LUNG CANCER
     Dosage: 80 MG/M2 DAILY; ON DAY 1 EVERY 3 WEEKS FOR 3 CYCLES
     Route: 065
  2. VINORELBINE [Suspect]
     Indication: NON-SMALL CELL LUNG CANCER
     Dosage: ON DAYS 1 AND 8 EVERY 3 WEEKS FOR 3 CYCLES
     Route: 065

REACTIONS (1)
  - Idiopathic pulmonary fibrosis [Fatal]
